FAERS Safety Report 6309640-6 (Version None)
Quarter: 2009Q3

REPORT INFORMATION
  Report Type: 
  Country: None (occurrence: None)
  Receive Date: 20090814
  Receipt Date: 20090807
  Transmission Date: 20100115
  Serious: Yes (Hospitalization)
  Sender: FDA-Public Use
  Company Number: US-JNJFOC-20090802746

PATIENT
  Sex: Female

DRUGS (1)
  1. DURAGESIC-100 [Suspect]
     Indication: NECK PAIN
     Dosage: 100 UG/HR + 75 UG/HR IN 48 HOURS
     Route: 062

REACTIONS (5)
  - DRUG DEPENDENCE [None]
  - HYPERHIDROSIS [None]
  - INAPPROPRIATE SCHEDULE OF DRUG ADMINISTRATION [None]
  - MENOPAUSE [None]
  - MUSCULOSKELETAL DISORDER [None]
